FAERS Safety Report 16122786 (Version 1)
Quarter: 2019Q1

REPORT INFORMATION
  Report Type: Spontaneous
  Country: FR (occurrence: FR)
  Receive Date: 20190327
  Receipt Date: 20190327
  Transmission Date: 20190418
  Serious: Yes (Hospitalization)
  Sender: FDA-Public Use
  Company Number: FR-JNJFOC-20190325506

PATIENT
  Sex: Male
  Weight: 84 kg

DRUGS (11)
  1. NOVATREX NOS [Concomitant]
     Active Substance: AZITHROMYCIN OR METHOTREXATE SODIUM
     Route: 065
  2. SIMPONI [Suspect]
     Active Substance: GOLIMUMAB
     Indication: ANKYLOSING SPONDYLITIS
     Route: 058
     Dates: start: 20130706
  3. AVODART [Concomitant]
     Active Substance: DUTASTERIDE
     Route: 065
  4. COVERSYL [Concomitant]
     Active Substance: PERINDOPRIL
     Route: 065
  5. DEDROGYL [Concomitant]
     Active Substance: CALCIFEDIOL
     Route: 065
  6. ELIQUIS [Concomitant]
     Active Substance: APIXABAN
     Route: 065
  7. TADENAN [Concomitant]
     Active Substance: PYGEUM
     Route: 065
  8. SOTALOL HYDROCHLORIDE. [Concomitant]
     Active Substance: SOTALOL HYDROCHLORIDE
     Route: 065
  9. ACIDE FOLIQUE [Concomitant]
     Active Substance: FOLIC ACID
     Route: 065
  10. CRESTOR [Concomitant]
     Active Substance: ROSUVASTATIN CALCIUM
     Route: 065
  11. ESOMEPRAZOLE. [Concomitant]
     Active Substance: ESOMEPRAZOLE MAGNESIUM
     Route: 065

REACTIONS (6)
  - Malaise [Recovered/Resolved]
  - Off label use [Unknown]
  - Headache [Recovered/Resolved]
  - Hypertension [Recovered/Resolved]
  - Product use issue [Unknown]
  - Atrial fibrillation [Recovered/Resolved]

NARRATIVE: CASE EVENT DATE: 20130706
